FAERS Safety Report 10474485 (Version 1)
Quarter: 2014Q3

REPORT INFORMATION
  Report Type: Spontaneous
  Country: JP (occurrence: JP)
  Receive Date: 20140924
  Receipt Date: 20140924
  Transmission Date: 20150326
  Serious: Yes (Other)
  Sender: FDA-Public Use
  Company Number: JP-GILEAD-2014-0115981

PATIENT
  Age: 45 Year
  Sex: Male

DRUGS (3)
  1. HEPSERA [Suspect]
     Active Substance: ADEFOVIR DIPIVOXIL
     Indication: CHRONIC HEPATITIS B
     Dosage: 10MG PER DAY
     Route: 048
     Dates: start: 201306, end: 201407
  2. BARACLUDE [Concomitant]
     Active Substance: ENTECAVIR
     Indication: CHRONIC HEPATITIS B
     Dosage: .5MG PER DAY
     Route: 048
     Dates: start: 201306
  3. SODIUM VALPROATE [Suspect]
     Active Substance: VALPROATE SODIUM
     Indication: TRISOMY 21
     Dosage: UNK
     Route: 048

REACTIONS (2)
  - Blood alkaline phosphatase increased [Recovering/Resolving]
  - Fanconi syndrome acquired [Unknown]

NARRATIVE: CASE EVENT DATE: 201312
